FAERS Safety Report 5242920-4 (Version None)
Quarter: 2007Q1

REPORT INFORMATION
  Report Type: 
  Country: None (occurrence: None)
  Receive Date: 20070221
  Receipt Date: 20070209
  Transmission Date: 20070707
  Serious: Yes (Hospitalization, Other)
  Sender: FDA-Public Use
  Company Number: GB-NOVOPROD-259246

PATIENT
  Sex: Male
  Weight: 3.42 kg

DRUGS (2)
  1. LEVEMIR [Suspect]
     Indication: DIABETES MELLITUS INSULIN-DEPENDENT
     Dosage: 10 IU, QD
     Route: 064
     Dates: start: 20050706, end: 20061107
  2. NOVORAPID [Suspect]
     Indication: DIABETES MELLITUS INSULIN-DEPENDENT
     Dosage: 26 IU, QD
     Route: 064
     Dates: start: 20050706, end: 20061107

REACTIONS (1)
  - FOETAL DISTRESS SYNDROME [None]
